FAERS Safety Report 6348381-6 (Version None)
Quarter: 2009Q3

REPORT INFORMATION
  Report Type: 
  Country: None (occurrence: None)
  Receive Date: 20090908
  Receipt Date: 20090830
  Transmission Date: 20100115
  Serious: Yes (Other)
  Sender: FDA-Public Use
  Company Number: CHPA2009US17976

PATIENT
  Age: 50 Year
  Sex: Female
  Weight: 77.1 kg

DRUGS (1)
  1. EXECEDRIN MIGRAINE (CAFFEINE CITRATE, ACETYLSALICYLIC ACID, ACETAMINOP [Suspect]
     Indication: MIGRAINE
     Dosage: 2 DF, ONCE/SINGLE, ORAL
     Route: 048
     Dates: start: 20090829, end: 20090829

REACTIONS (8)
  - ABASIA [None]
  - ASTHENIA [None]
  - BALANCE DISORDER [None]
  - CHILLS [None]
  - DIZZINESS [None]
  - FEELING COLD [None]
  - PAIN IN EXTREMITY [None]
  - PANIC ATTACK [None]
